FAERS Safety Report 12502138 (Version 2)
Quarter: 2016Q2

REPORT INFORMATION
  Report Type: Report from Study
  Country: US (occurrence: US)
  Receive Date: 20160627
  Receipt Date: 20160628
  Transmission Date: 20160815
  Serious: Yes (Death, Hospitalization)
  Sender: FDA-Public Use
  Company Number: US-JNJFOC-20160622920

PATIENT
  Sex: Male

DRUGS (1)
  1. DARZALEX [Suspect]
     Active Substance: DARATUMUMAB
     Indication: PLASMA CELL MYELOMA
     Route: 042
     Dates: start: 2016

REACTIONS (8)
  - Herpes virus infection [Unknown]
  - Meningitis herpes [Fatal]
  - Neutropenia [Fatal]
  - Neutrophil count abnormal [Unknown]
  - HIV infection [Unknown]
  - Headache [Unknown]
  - Bone marrow failure [Unknown]
  - General physical health deterioration [Unknown]

NARRATIVE: CASE EVENT DATE: 2016
